FAERS Safety Report 18271901 (Version 2)
Quarter: 2021Q1

REPORT INFORMATION
  Report Type: Report from Study
  Country: None (occurrence: US)
  Receive Date: 20200916
  Receipt Date: 20210115
  Transmission Date: 20210419
  Serious: Yes (Death, Hospitalization)
  Sender: FDA-Public Use
  Company Number: US-INSMED, INC.-US-INS-20-01740

PATIENT
  Age: 69 Year
  Sex: Male

DRUGS (2)
  1. ARIKAYCE [Suspect]
     Active Substance: AMIKACIN
     Route: 055
     Dates: start: 20190624, end: 20200907
  2. ARIKAYCE [Suspect]
     Active Substance: AMIKACIN
     Indication: MYCOBACTERIUM AVIUM COMPLEX INFECTION
     Route: 055
     Dates: start: 201905, end: 20190624

REACTIONS (2)
  - Death [Fatal]
  - Hospitalisation [Unknown]

NARRATIVE: CASE EVENT DATE: 20200907
